FAERS Safety Report 9166212 (Version 1)
Quarter: 2013Q1

REPORT INFORMATION
  Report Type: Spontaneous
  Country: US (occurrence: US)
  Receive Date: 20130315
  Receipt Date: 20130315
  Transmission Date: 20140127
  Serious: Yes (Hospitalization)
  Sender: FDA-Public Use
  Company Number: US-BAYER-2013-030648

PATIENT
  Age: 30 Year
  Sex: Female
  Weight: 179.59 kg

DRUGS (12)
  1. YAZ [Suspect]
     Indication: CONTRACEPTION
  2. LEVOTHYROXINE [Concomitant]
     Indication: HYPOTHYROIDISM
     Dosage: UNK
  3. EPIPEN [Concomitant]
     Indication: MAJOR DEPRESSION
  4. CLOZAPINE [Concomitant]
     Indication: MAJOR DEPRESSION
     Dosage: UNK
     Dates: start: 201107
  5. HYDROCODONE/ACETAMINOPHEN [Concomitant]
     Indication: PAIN
  6. VISTARIL [HYDROXYZINE EMBONATE] [Concomitant]
     Indication: ANXIETY
     Dosage: 25 MG, UNK
     Route: 048
  7. LOESTRIN [Concomitant]
     Indication: DYSPNOEA
  8. PROPANOL [Concomitant]
  9. ALBUTEROL [Concomitant]
     Indication: ASTHMA
  10. IMITREX [Concomitant]
     Indication: MIGRAINE
  11. PROPANOLOL [Concomitant]
     Indication: HYPERTENSION
  12. PROTONIX [Concomitant]
     Indication: PROPHYLAXIS

REACTIONS (1)
  - Pulmonary embolism [None]
